FAERS Safety Report 17779538 (Version 2)
Quarter: 2020Q2

REPORT INFORMATION
  Report Type: Spontaneous
  Country: US (occurrence: US)
  Receive Date: 20200514
  Receipt Date: 20200518
  Transmission Date: 20200714
  Serious: Yes (Hospitalization, Other)
  Sender: FDA-Public Use
  Company Number: US-DRREDDYS-USA/USA/20/0122875

PATIENT
  Age: 61 Year
  Sex: Female

DRUGS (5)
  1. TIZANIDINE HYDROCHLORIDE. [Suspect]
     Active Substance: TIZANIDINE HYDROCHLORIDE
     Indication: PRODUCT USED FOR UNKNOWN INDICATION
     Dosage: AS NEEDED
     Route: 065
  2. LORAZEPAM INJECTION USP, 2 MG/ML AND 4 MG/ML [Concomitant]
     Active Substance: LORAZEPAM
     Dosage: 1 G/10 ML
  3. OXYCODONE AND ACETAMINOPHEN [Concomitant]
     Active Substance: ACETAMINOPHEN\OXYCODONE HYDROCHLORIDE
     Indication: PRODUCT USED FOR UNKNOWN INDICATION
  4. GABAPENTIN. [Concomitant]
     Active Substance: GABAPENTIN
     Indication: PRODUCT USED FOR UNKNOWN INDICATION
  5. LORAZEPAM INJECTION USP, 2 MG/ML AND 4 MG/ML [Concomitant]
     Active Substance: LORAZEPAM
     Indication: PRODUCT USED FOR UNKNOWN INDICATION

REACTIONS (8)
  - Hypotension [Unknown]
  - Rebound effect [Unknown]
  - Gait disturbance [Unknown]
  - Syncope [Unknown]
  - Intentional product misuse [Unknown]
  - Tachycardia [Unknown]
  - Muscular weakness [Unknown]
  - Orthostatic hypotension [Recovered/Resolved]
